FAERS Safety Report 9214436 (Version 2)
Quarter: 2014Q1

REPORT INFORMATION
  Report Type: Spontaneous
  Country: US (occurrence: US)
  Receive Date: 20130405
  Receipt Date: 20140114
  Transmission Date: 20141002
  Serious: Yes (Disabling, Other)
  Sender: FDA-Public Use
  Company Number: US-BAYER-2013-040539

PATIENT
  Sex: Female

DRUGS (4)
  1. YAZ [Suspect]
     Dosage: UNK
     Dates: start: 200909, end: 201107
  2. YASMIN [Suspect]
     Dosage: UNK
     Dates: start: 200909, end: 201107
  3. CITALOPRAM HYDROBROMIDE [Concomitant]
     Dosage: 20 MG, UNK
     Route: 048
     Dates: start: 20110502
  4. NEXIUM [Concomitant]
     Dosage: 40 MG, UNK
     Route: 048
     Dates: start: 20110617

REACTIONS (6)
  - Biliary dyskinesia [None]
  - Gallbladder disorder [None]
  - Injury [None]
  - Pain [None]
  - Deformity [None]
  - Anxiety [None]
